FAERS Safety Report 16181007 (Version 1)
Quarter: 2019Q2

REPORT INFORMATION
  Report Type: Report from Study
  Country: US (occurrence: US)
  Receive Date: 20190410
  Receipt Date: 20190410
  Transmission Date: 20190711
  Serious: Yes (Hospitalization)
  Sender: FDA-Public Use
  Company Number: US-ACTELION-A-NJ2018-166312

PATIENT
  Age: 77 Year
  Sex: Female
  Weight: 83.9 kg

DRUGS (4)
  1. ADEMPAS [Concomitant]
     Active Substance: RIOCIGUAT
  2. NIFEDIPINE. [Concomitant]
     Active Substance: NIFEDIPINE
  3. XARELTO [Concomitant]
     Active Substance: RIVAROXABAN
  4. OPSUMIT [Suspect]
     Active Substance: MACITENTAN
     Indication: PULMONARY ARTERIAL HYPERTENSION
     Dosage: 10 MG, QD
     Route: 048
     Dates: start: 20171228

REACTIONS (10)
  - Pain [Recovered/Resolved]
  - Arthralgia [Unknown]
  - Back pain [Unknown]
  - Product dose omission [Recovered/Resolved]
  - Hypertension [Not Recovered/Not Resolved]
  - Insomnia [Unknown]
  - Emergency care [Unknown]
  - Fall [Recovered/Resolved]
  - Hospitalisation [Unknown]
  - Gait disturbance [Unknown]

NARRATIVE: CASE EVENT DATE: 201712
